FAERS Safety Report 5597609-9 (Version None)
Quarter: 2008Q1

REPORT INFORMATION
  Report Type: 
  Country: None (occurrence: None)
  Receive Date: 20080121
  Receipt Date: 20080118
  Transmission Date: 20080703
  Serious: Yes (Other)
  Sender: FDA-Public Use
  Company Number: D0055114A

PATIENT
  Age: 46 Year
  Sex: Female

DRUGS (7)
  1. ELONTRIL [Suspect]
     Indication: DEPRESSION
     Dosage: 150MG AT NIGHT
     Route: 048
     Dates: start: 20071109
  2. CERAZETTE [Suspect]
     Indication: ENDOMETRIOSIS
     Dosage: .075MG UNKNOWN
     Route: 048
  3. TREVILOR [Concomitant]
     Indication: DEPRESSION
     Route: 048
     Dates: end: 20071108
  4. BROMAZEPAM [Concomitant]
     Indication: SLEEP DISORDER
     Route: 048
  5. XIMOVAN [Concomitant]
     Route: 048
     Dates: start: 20071101
  6. L-THYROXIN [Concomitant]
     Route: 048
  7. SIMVASTATIN [Concomitant]
     Route: 048

REACTIONS (15)
  - AGGRESSION [None]
  - AGITATION [None]
  - ANGER [None]
  - APPETITE DISORDER [None]
  - ASTHENIA [None]
  - BALANCE DISORDER [None]
  - DIZZINESS [None]
  - HYPERHIDROSIS [None]
  - INSOMNIA [None]
  - NAUSEA [None]
  - NERVOUSNESS [None]
  - RESTLESSNESS [None]
  - TACHYCARDIA [None]
  - TINNITUS [None]
  - TREMOR [None]
